FAERS Safety Report 18949969 (Version 1)
Quarter: 2021Q1

REPORT INFORMATION
  Report Type: Spontaneous
  Country: US (occurrence: US)
  Receive Date: 20210227
  Receipt Date: 20210227
  Transmission Date: 20210420
  Serious: No
  Sender: FDA-Public Use
  Company Number: US-TEVA-2021-US-1883968

PATIENT
  Age: 25 Year
  Sex: Male

DRUGS (2)
  1. FLUTICASONE PROPIONATE/SALMETEROL TEVA [Suspect]
     Active Substance: FLUTICASONE PROPIONATE\SALMETEROL XINAFOATE
  2. FLUTICASONE PROPIONATE/SALMETEROL TEVA [Suspect]
     Active Substance: FLUTICASONE PROPIONATE\SALMETEROL XINAFOATE
     Dosage: 113 MCG/14 MCG TWICE A DAY IN THE MORNING AND EVENING
     Route: 065
     Dates: start: 20200918

REACTIONS (1)
  - Alopecia [Recovering/Resolving]

NARRATIVE: CASE EVENT DATE: 20201002
